FAERS Safety Report 9760253 (Version 2)
Quarter: 2013Q4

REPORT INFORMATION
  Report Type: Spontaneous
  Country: US (occurrence: US)
  Receive Date: 20131216
  Receipt Date: 20131216
  Transmission Date: 20140711
  Serious: Yes (Hospitalization)
  Sender: FDA-Public Use
  Company Number: US-GLAXOSMITHKLINE-A0903051A

PATIENT
  Age: 69 Year
  Sex: Female

DRUGS (10)
  1. AVANDIA [Suspect]
     Indication: DIABETES MELLITUS
     Dosage: 4MG PER DAY
     Route: 048
     Dates: end: 201007
  2. RANITIDINE [Concomitant]
  3. HYDROCHLOROTHIAZIDE [Concomitant]
  4. METFORMIN [Concomitant]
  5. PAROXETINE [Concomitant]
  6. PRAVASTATIN [Concomitant]
  7. LOTREL [Concomitant]
  8. GEMFIBROZIL [Concomitant]
  9. PHENYTOIN [Concomitant]
  10. IBUPROFEN [Concomitant]

REACTIONS (1)
  - Bundle branch block left [Unknown]
